FAERS Safety Report 13193810 (Version 1)
Quarter: 2017Q1

REPORT INFORMATION
  Report Type: Spontaneous
  Country: US (occurrence: US)
  Receive Date: 20170207
  Receipt Date: 20170207
  Transmission Date: 20170428
  Serious: No
  Sender: FDA-Public Use
  Company Number: US-BRISTOL-MYERS SQUIBB COMPANY-BMS-2017-003861

PATIENT
  Sex: Male
  Weight: 83.91 kg

DRUGS (3)
  1. MYFORTIC [Concomitant]
     Active Substance: MYCOPHENOLATE SODIUM
     Indication: PRODUCT USED FOR UNKNOWN INDICATION
     Route: 065
  2. PREDNISONE. [Concomitant]
     Active Substance: PREDNISONE
     Indication: PRODUCT USED FOR UNKNOWN INDICATION
     Route: 065
  3. NULOJIX [Suspect]
     Active Substance: BELATACEPT
     Indication: PANCREAS TRANSPLANT
     Route: 042
     Dates: start: 201609

REACTIONS (1)
  - White blood cell count increased [Unknown]
